FAERS Safety Report 5545265-8 (Version None)
Quarter: 2007Q4

REPORT INFORMATION
  Report Type: 
  Country: None (occurrence: None)
  Receive Date: 20071211
  Receipt Date: 20071128
  Transmission Date: 20080405
  Serious: Yes (Hospitalization, Other)
  Sender: FDA-Public Use
  Company Number: PHBS2007JP20124

PATIENT
  Age: 22 Year
  Sex: Female

DRUGS (5)
  1. CYTARABINE [Concomitant]
     Indication: BONE MARROW TRANSPLANT
     Dosage: 2 G/M2 PER DAY
  2. CYCLOPHOSPHAMIDE [Concomitant]
     Indication: BONE MARROW TRANSPLANT
     Dosage: 60 MG/KG PER DAY
  3. METHOTREXATE [Concomitant]
     Indication: BONE MARROW TRANSPLANT
     Dosage: 8 MG/M2 ON DAY +1, +3, +6
  4. CYCLOSPORINE [Suspect]
     Indication: BONE MARROW TRANSPLANT
     Dosage: UNK, UNK
     Route: 065
     Dates: start: 19980301
  5. IRRADIATION [Concomitant]
     Dosage: 12 GY IN 6 FRACTIONS

REACTIONS (6)
  - BLOOD CREATININE INCREASED [None]
  - CARDIOMYOPATHY [None]
  - CARDIOTOXICITY [None]
  - HAEMODIALYSIS [None]
  - NEPHROPATHY [None]
  - RENAL TRANSPLANT [None]
